FAERS Safety Report 16683017 (Version 1)
Quarter: 2019Q3

REPORT INFORMATION
  Report Type: Report from Study
  Country: GB (occurrence: GB)
  Receive Date: 20190808
  Receipt Date: 20190808
  Transmission Date: 20191004
  Serious: Yes (Hospitalization)
  Sender: FDA-Public Use
  Company Number: GB-SAMSUNG BIOEPIS-SB-2019-15429

PATIENT
  Sex: Female

DRUGS (1)
  1. IMRALDI [Suspect]
     Active Substance: ADALIMUMAB
     Indication: RHEUMATOID ARTHRITIS
     Route: 058
     Dates: start: 20190322

REACTIONS (7)
  - Nausea [Unknown]
  - Joint swelling [Unknown]
  - Malaise [Unknown]
  - Muscular weakness [Unknown]
  - Limb discomfort [Unknown]
  - Chest pain [Unknown]
  - Chest discomfort [Unknown]
